FAERS Safety Report 6944619-2 (Version None)
Quarter: 2010Q3

REPORT INFORMATION
  Report Type: 
  Country: None (occurrence: None)
  Receive Date: 20100827
  Receipt Date: 20100818
  Transmission Date: 20110219
  Serious: Yes (Other)
  Sender: FDA-Public Use
  Company Number: CA-JNJFOC-20100210811

PATIENT
  Sex: Female
  Weight: 80 kg

DRUGS (9)
  1. REMICADE [Suspect]
     Indication: COLITIS ULCERATIVE
     Route: 042
  2. REMICADE [Suspect]
     Route: 042
  3. PREDNISONE [Suspect]
     Indication: PRODUCT USED FOR UNKNOWN INDICATION
  4. ACETAMINOPHEN [Concomitant]
     Indication: PREMEDICATION
     Route: 048
  5. SPIRONOLACTONE [Concomitant]
  6. COUMADIN [Concomitant]
  7. RYTHMOL [Concomitant]
  8. LASIX [Concomitant]
  9. SOLU-CORTEF [Concomitant]
     Indication: PREMEDICATION
     Route: 042

REACTIONS (4)
  - BLINDNESS UNILATERAL [None]
  - INFUSION RELATED REACTION [None]
  - RETINAL OEDEMA [None]
  - VISION BLURRED [None]
